FAERS Safety Report 5646995-X (Version None)
Quarter: 2008Q1

REPORT INFORMATION
  Report Type: 
  Country: None (occurrence: None)
  Receive Date: 20080303
  Receipt Date: 20080225
  Transmission Date: 20080703
  Serious: Yes (Life-Threatening)
  Sender: FDA-Public Use
  Company Number: B0508036A

PATIENT
  Age: 66 Year
  Sex: Female

DRUGS (3)
  1. ZYBAN [Suspect]
     Route: 048
     Dates: start: 20071231, end: 20071231
  2. DIAPAM [Concomitant]
     Indication: SEDATION
     Route: 048
  3. LIMBITROL [Concomitant]
     Indication: ANTIDEPRESSANT THERAPY
     Route: 048

REACTIONS (6)
  - ANHEDONIA [None]
  - DYSPNOEA [None]
  - INSOMNIA [None]
  - MALAISE [None]
  - PHOBIA [None]
  - THROAT TIGHTNESS [None]
